FAERS Safety Report 4641160-7 (Version None)
Quarter: 2005Q2

REPORT INFORMATION
  Report Type: 
  Country: None (occurrence: None)
  Receive Date: 20050421
  Receipt Date: 20050414
  Transmission Date: 20051028
  Serious: Yes (Other)
  Sender: FDA-Public Use
  Company Number: 200511182JP

PATIENT
  Sex: 0

DRUGS (3)
  1. ALLEGRA [Suspect]
     Indication: SEASONAL ALLERGY
     Route: 048
  2. DAONIL [Concomitant]
  3. BASEN [Concomitant]

REACTIONS (2)
  - PALPITATIONS [None]
  - TACHYCARDIA [None]
